FAERS Safety Report 25897277 (Version 1)
Quarter: 2025Q4

REPORT INFORMATION
  Report Type: Spontaneous
  Country: US (occurrence: US)
  Receive Date: 20251008
  Receipt Date: 20251008
  Transmission Date: 20260118
  Serious: No
  Sender: MYLAN
  Company Number: US-MYLANLABS-2025M1080880

PATIENT
  Sex: Female
  Weight: 56.7 kg

DRUGS (4)
  1. EMSAM [Suspect]
     Active Substance: SELEGILINE
     Indication: Bipolar disorder
     Dosage: 6 MILLIGRAM, QD (PER 24 HOURS)
  2. EMSAM [Suspect]
     Active Substance: SELEGILINE
     Dosage: 12 MILLIGRAM
  3. AMLODIPINE BESYLATE [Concomitant]
     Active Substance: AMLODIPINE BESYLATE
     Indication: Blood pressure abnormal
     Dosage: UNK
  4. ROSUVASTATIN [Concomitant]
     Active Substance: ROSUVASTATIN
     Indication: Blood cholesterol abnormal
     Dosage: UNK

REACTIONS (4)
  - Alopecia [Unknown]
  - Drug ineffective [Unknown]
  - Off label use [Unknown]
  - Product adhesion issue [Unknown]
